FAERS Safety Report 8803151 (Version 1)
Quarter: 2012Q4

REPORT INFORMATION
  Report Type: Report from Study
  Country: US (occurrence: US)
  Receive Date: 20120924
  Receipt Date: 20120924
  Transmission Date: 20130627
  Serious: Yes (Hospitalization, Other)
  Sender: FDA-Public Use
  Company Number: US-BAYER-2012-095994

PATIENT
  Sex: Male

DRUGS (2)
  1. CIPROFLOXACIN MONOHYDROCHLORIDE [Suspect]
     Indication: ANTIBIOTIC PROPHYLAXIS
     Dosage: 500 mg, BID, 6 doses, starting the evening before procedure
     Route: 048
  2. WARFARIN [Concomitant]
     Indication: EMBOLISM VENOUS
     Dosage: had been held for 5 days before transponder placement
     Route: 048

REACTIONS (6)
  - Urinary tract infection [Recovered/Resolved]
  - Escherichia bacteraemia [Recovered/Resolved]
  - Dehydration [Recovered/Resolved]
  - Hyponatraemia [Recovered/Resolved]
  - Renal failure acute [Recovered/Resolved]
  - Pathogen resistance [None]
